FAERS Safety Report 5890950-1 (Version None)
Quarter: 2008Q3

REPORT INFORMATION
  Report Type: 
  Country: None (occurrence: None)
  Receive Date: 20080922
  Receipt Date: 20080917
  Transmission Date: 20090109
  Serious: Yes (Hospitalization)
  Sender: FDA-Public Use
  Company Number: A0747755A

PATIENT
  Age: 32 Year
  Sex: Male

DRUGS (1)
  1. LAMICTAL [Suspect]
     Indication: DRUG USE FOR UNKNOWN INDICATION
     Dosage: 25MG PER DAY
     Route: 048
     Dates: start: 20080812, end: 20080815

REACTIONS (4)
  - BLISTER [None]
  - OPEN WOUND [None]
  - PRURITUS [None]
  - THERMAL BURN [None]
